FAERS Safety Report 25838574 (Version 2)
Quarter: 2025Q3

REPORT INFORMATION
  Report Type: Spontaneous
  Country: CN (occurrence: CN)
  Receive Date: 20250923
  Receipt Date: 20250929
  Transmission Date: 20251021
  Serious: Yes (Hospitalization, Other)
  Sender: IPSEN BIOPHARMACEUTICALS, INC.
  Company Number: CN-IPSEN Group, Research and Development-2025-23102

PATIENT
  Age: 42 Year
  Sex: Female

DRUGS (2)
  1. BOTULINUM TOXIN TYPE A [Suspect]
     Active Substance: BOTULINUM TOXIN TYPE A
     Indication: Product used for unknown indication
  2. IRBESARTAN [Concomitant]
     Active Substance: IRBESARTAN

REACTIONS (2)
  - Myasthenia gravis [Recovered/Resolved]
  - Neuromuscular toxicity [Recovered/Resolved]
